FAERS Safety Report 5128962-8 (Version None)
Quarter: 2006Q4

REPORT INFORMATION
  Report Type: 
  Country: None (occurrence: None)
  Receive Date: 20061016
  Receipt Date: 20061016
  Transmission Date: 20070319
  Serious: Yes (Hospitalization)
  Sender: FDA-Public Use
  Company Number: None

PATIENT
  Sex: Male
  Weight: 96.1 kg

DRUGS (5)
  1. CYCLOPHOSPHAMIDE [Suspect]
     Dosage: 2425 MG
     Dates: end: 20060906
  2. DAUNORUBICIN HCL [Suspect]
     Dosage: 486 MG
     Dates: end: 20060908
  3. DEXAMETHASONE TAB [Suspect]
     Dosage: 250 MG
     Dates: end: 20060926
  4. ELSPAR [Suspect]
     Dosage: 72720 UNIT
     Dates: end: 20060927
  5. VINCRISTINE SULFATE [Suspect]
     Dosage: 8 MG
     Dates: end: 20060927

REACTIONS (4)
  - BACTERIAL INFECTION [None]
  - BLOOD CULTURE POSITIVE [None]
  - DEEP VEIN THROMBOSIS [None]
  - PULMONARY EMBOLISM [None]
